FAERS Safety Report 9791685 (Version 5)
Quarter: 2014Q2

REPORT INFORMATION
  Report Type: Report from Study
  Country: GR (occurrence: GR)
  Receive Date: 20140102
  Receipt Date: 20140409
  Transmission Date: 20141212
  Serious: Yes (Life-Threatening, Hospitalization, Other)
  Sender: FDA-Public Use
  Company Number: GR-AMGEN-GRCCT2013091049

PATIENT
  Age: 77 Year
  Sex: Female
  Weight: 64 kg

DRUGS (9)
  1. DENOSUMAB [Suspect]
     Indication: BREAST CANCER
     Dosage: 120 MG, UNK
     Route: 058
     Dates: start: 20111013
  2. SINTROM [Concomitant]
     Dosage: 0.75 UNK, UNK
     Route: 048
     Dates: start: 2003, end: 20131228
  3. DIGOXIN [Concomitant]
     Dosage: 0.2 MG, UNK
     Route: 048
     Dates: start: 2002
  4. ATENOLOL [Concomitant]
     Dosage: 100 MG, UNK
     Route: 048
     Dates: start: 2003
  5. ZYLORIC [Concomitant]
     Dosage: 100 MG, UNK
     Route: 048
     Dates: start: 2008
  6. HYDROCHLOROTHIAZIDE [Concomitant]
     Dosage: 12.5 MG, UNK
     Route: 048
     Dates: start: 2003
  7. INSPRA                             /01613601/ [Concomitant]
     Dosage: 25 MG, UNK
     Route: 048
     Dates: start: 2010
  8. TRIATEC                            /00885601/ [Concomitant]
     Dosage: 5 MG, UNK
     Route: 048
     Dates: start: 2003
  9. IDEOS [Concomitant]
     Dosage: UNK
     Route: 048
     Dates: start: 20111006

REACTIONS (1)
  - Muscle haemorrhage [Recovered/Resolved]
